FAERS Safety Report 18281975 (Version 1)
Quarter: 2020Q3

REPORT INFORMATION
  Report Type: Spontaneous
  Country: US (occurrence: US)
  Receive Date: 20200918
  Receipt Date: 20200918
  Transmission Date: 20201103
  Serious: Yes (Other)
  Sender: FDA-Public Use
  Company Number: US-ELI_LILLY_AND_COMPANY-US202009004643

PATIENT

DRUGS (2)
  1. TRULICITY [Suspect]
     Active Substance: DULAGLUTIDE
     Indication: PRODUCT USED FOR UNKNOWN INDICATION
     Dosage: UNK, UNKNOWN
     Route: 065
  2. NOVOLOG [Concomitant]
     Active Substance: INSULIN ASPART
     Indication: PRODUCT USED FOR UNKNOWN INDICATION

REACTIONS (9)
  - Blindness unilateral [Unknown]
  - Thyroid cancer [Unknown]
  - Retinal tear [Unknown]
  - Retinal detachment [Unknown]
  - Incorrect dose administered [Unknown]
  - Body height decreased [Unknown]
  - Eye disorder [Unknown]
  - Vomiting [Unknown]
  - Diarrhoea [Unknown]
